FAERS Safety Report 25386081 (Version 2)
Quarter: 2025Q3

REPORT INFORMATION
  Report Type: Spontaneous
  Country: EU (occurrence: EU)
  Receive Date: 20250602
  Receipt Date: 20250714
  Transmission Date: 20251020
  Serious: Yes (Other)
  Sender: NOVARTIS
  Company Number: EU-002147023-NVSC2025DE087520

PATIENT
  Age: 31 Year
  Sex: Male

DRUGS (3)
  1. KESIMPTA [Suspect]
     Active Substance: OFATUMUMAB
     Indication: Relapsing multiple sclerosis
     Dosage: 20 MG, QMO
     Route: 058
     Dates: start: 20230504, end: 20250408
  2. PREGABALIN [Concomitant]
     Active Substance: PREGABALIN
     Indication: Multiple sclerosis
     Route: 048
     Dates: start: 20210514, end: 20240523
  3. PREGABALIN [Concomitant]
     Active Substance: PREGABALIN
     Indication: Lhermitte^s sign

REACTIONS (3)
  - Blood immunoglobulin G decreased [Recovered/Resolved]
  - Blood immunoglobulin M decreased [Recovering/Resolving]
  - Infection susceptibility increased [Recovered/Resolved]

NARRATIVE: CASE EVENT DATE: 20240117
